FAERS Safety Report 7002123-X (Version None)
Quarter: 2010Q3

REPORT INFORMATION
  Report Type: 
  Country: None (occurrence: None)
  Receive Date: 20100917
  Receipt Date: 20100917
  Transmission Date: 20110219
  Serious: No
  Sender: FDA-Public Use
  Company Number: None

PATIENT
  Sex: Female
  Weight: 72.5755 kg

DRUGS (2)
  1. NIASPAN [Suspect]
     Indication: CORONARY ARTERY DISEASE
     Dosage: 1000 MG 1 ONCE DAILY NIGHT
     Dates: start: 20100617
  2. NIASPAN [Suspect]
     Indication: CORONARY ARTERY DISEASE
     Dosage: 1000 MG 1 ONCE DAILY NIGHT
     Dates: start: 20100903

REACTIONS (2)
  - PRURITUS GENERALISED [None]
  - RASH GENERALISED [None]
